FAERS Safety Report 9282966 (Version 2)
Quarter: 2014Q4

REPORT INFORMATION
  Report Type: Spontaneous
  Country: US (occurrence: US)
  Receive Date: 20130510
  Receipt Date: 20141224
  Transmission Date: 20150529
  Serious: No
  Sender: FDA-Public Use
  Company Number: US-GLAXOSMITHKLINE-A0904104A

PATIENT
  Age: 80 Year
  Sex: Female

DRUGS (16)
  1. ULCER MEDICATION [Concomitant]
  2. VITAMIN B12 [Concomitant]
     Active Substance: CYANOCOBALAMIN
  3. ASPIRIN. [Concomitant]
     Active Substance: ASPIRIN
  4. TYKERB [Suspect]
     Active Substance: LAPATINIB DITOSYLATE
     Indication: BREAST CANCER
     Dosage: 5 UNK, 1D
     Route: 048
     Dates: start: 200704
  5. HERCEPTIN [Concomitant]
     Active Substance: TRASTUZUMAB
  6. NAVELBINE [Concomitant]
     Active Substance: VINORELBINE TARTRATE
  7. LUCENTIS [Concomitant]
     Active Substance: RANIBIZUMAB
  8. XANAX [Concomitant]
     Active Substance: ALPRAZOLAM
  9. SUPPLEMENT [Concomitant]
     Active Substance: UNSPECIFIED INGREDIENT
  10. QUININE [Concomitant]
     Active Substance: QUININE
  11. TYKERB [Suspect]
     Active Substance: LAPATINIB DITOSYLATE
     Dosage: 500 MG, QD
     Dates: start: 20070516
  12. ACIPHEX [Concomitant]
     Active Substance: RABEPRAZOLE SODIUM
  13. MELATONIN [Concomitant]
     Active Substance: MELATONIN
  14. BIOTIN [Concomitant]
     Active Substance: BIOTIN
  15. VITAMIN D [Concomitant]
     Active Substance: CHOLECALCIFEROL
  16. UNSPECIFIED MEDICATION SOLUTION FOR INJECTION [Concomitant]

REACTIONS (2)
  - Muscle spasms [Not Recovered/Not Resolved]
  - Abdominal pain upper [Unknown]

NARRATIVE: CASE EVENT DATE: 200906
